FAERS Safety Report 9190726 (Version 1)
Quarter: 2013Q1

REPORT INFORMATION
  Report Type: Spontaneous
  Country: US (occurrence: US)
  Receive Date: 20130326
  Receipt Date: 20130326
  Transmission Date: 20140127
  Serious: Yes (Other)
  Sender: FDA-Public Use
  Company Number: US-PFIZER INC-2013091133

PATIENT
  Age: 37 Year
  Sex: Male
  Weight: 87.08 kg

DRUGS (2)
  1. ROBITUSSIN COUGH AND CHEST CONGESTION DM [Suspect]
     Indication: COUGH
     Dosage: UNK
  2. ROBITUSSIN COUGH AND CHEST CONGESTION DM [Suspect]
     Indication: OROPHARYNGEAL PAIN

REACTIONS (1)
  - Dyspnoea [Unknown]
